FAERS Safety Report 4529625-X (Version None)
Quarter: 2004Q4

REPORT INFORMATION
  Report Type: 
  Country: None (occurrence: None)
  Receive Date: 20041214
  Receipt Date: 20041201
  Transmission Date: 20050328
  Serious: Yes (Other)
  Sender: FDA-Public Use
  Company Number: 2004094491

PATIENT
  Age: 69 Year
  Sex: Female
  Weight: 45.3597 kg

DRUGS (12)
  1. DETROL LA [Suspect]
     Indication: HYPERTONIC BLADDER
     Dosage: 4 MG (4 MG), ORAL
     Route: 048
     Dates: start: 20041109, end: 20041110
  2. FOSINOPRIL SODIUM [Concomitant]
  3. GABAPENTIN [Concomitant]
  4. ATORVASTATIN (ATORVASTATIN) [Concomitant]
  5. AMITRIPTYLINE HCL [Concomitant]
  6. MULTIVITAMINS (ASCORBIC ACID, ERGOCALCIFEROL, FOLIC ACID, NICOTINAMIDE [Concomitant]
  7. FUROSEMIDE [Concomitant]
  8. ASPIRIN [Concomitant]
  9. NIFEDIPINE [Concomitant]
  10. IRON (IRON) [Concomitant]
  11. FOLIC ACID [Concomitant]
  12. ALENDRONATE SODIUM [Concomitant]

REACTIONS (4)
  - BLADDER PAIN [None]
  - DYSURIA [None]
  - FLUID RETENTION [None]
  - PAIN [None]
